FAERS Safety Report 7090413-4 (Version None)
Quarter: 2010Q4

REPORT INFORMATION
  Report Type: 
  Country: None (occurrence: None)
  Receive Date: 20101109
  Receipt Date: 20101026
  Transmission Date: 20110411
  Serious: Yes (Hospitalization)
  Sender: FDA-Public Use
  Company Number: US-BAYER-201024399NA

PATIENT
  Age: 49 Year
  Sex: Female
  Weight: 168 kg

DRUGS (11)
  1. YAZ [Suspect]
     Indication: PREMENSTRUAL SYNDROME
     Route: 048
     Dates: start: 20090101
  2. YASMIN [Suspect]
     Indication: PRODUCT USED FOR UNKNOWN INDICATION
     Route: 048
  3. LASIX [Concomitant]
     Dosage: UNIT DOSE: 20 MG
  4. PROTONIX [Concomitant]
     Dosage: DAILY
  5. METOPROLOL [Concomitant]
     Dosage: DAILY
  6. AZOR [Concomitant]
     Dosage: 10MG/40MG DAILY
  7. TOPAMAX [Concomitant]
     Dosage: UNIT DOSE: 50 MG
  8. EFFEXOR XR [Concomitant]
     Dosage: DAILY
  9. AMBIEN CR [Concomitant]
  10. TOPROL-XL [Concomitant]
     Dosage: UNIT DOSE: 50 MG
  11. AMBIEN [Concomitant]

REACTIONS (3)
  - DEEP VEIN THROMBOSIS [None]
  - OEDEMA PERIPHERAL [None]
  - PULMONARY EMBOLISM [None]
